FAERS Safety Report 19002631 (Version 1)
Quarter: 2021Q1

REPORT INFORMATION
  Report Type: Spontaneous
  Country: US (occurrence: US)
  Receive Date: 20210311
  Receipt Date: 20210311
  Transmission Date: 20210420
  Serious: No
  Sender: FDA-Public Use
  Company Number: None

PATIENT
  Age: 41 Year
  Sex: Male

DRUGS (1)
  1. SULFAMETHOXAZOLE/TRIMETHOPRIM (SULFAMETHOXAZOLE 400MG/TRIMETHOPRIM 80MG TAB) [Suspect]
     Active Substance: SULFAMETHOXAZOLE\TRIMETHOPRIM
     Indication: UPPER RESPIRATORY TRACT INFECTION
     Dates: start: 20170803, end: 20170803

REACTIONS (1)
  - Rash [None]

NARRATIVE: CASE EVENT DATE: 20170803
